FAERS Safety Report 4631529-9 (Version None)
Quarter: 2005Q2

REPORT INFORMATION
  Report Type: 
  Country: None (occurrence: None)
  Receive Date: 20050407
  Receipt Date: 20050329
  Transmission Date: 20051028
  Serious: Yes (Other)
  Sender: FDA-Public Use
  Company Number: 2005051359

PATIENT
  Age: 58 Year
  Sex: Male

DRUGS (11)
  1. NORVASC [Suspect]
     Indication: ILL-DEFINED DISORDER
     Dosage: 2.5 MG (2.5 MG, DAILY), ORAL
     Route: 048
     Dates: start: 20041125
  2. OLMESARTAN (OLMESARTAN) [Suspect]
     Indication: ILL-DEFINED DISORDER
     Dosage: (10 MG), ORAL; (20 MG), ORAL; (40 MG), ORAL
     Route: 048
     Dates: start: 20040701, end: 20040804
  3. OLMESARTAN (OLMESARTAN) [Suspect]
     Indication: ILL-DEFINED DISORDER
     Dosage: (10 MG), ORAL; (20 MG), ORAL; (40 MG), ORAL
     Route: 048
     Dates: start: 20040805, end: 20040901
  4. OLMESARTAN (OLMESARTAN) [Suspect]
     Indication: ILL-DEFINED DISORDER
     Dosage: (10 MG), ORAL; (20 MG), ORAL; (40 MG), ORAL
     Route: 048
     Dates: start: 20040902
  5. INSULIN INJECTION, BIPHASIC (INSULIN INJECTION, BIPHASIC) [Concomitant]
  6. FUROSEMIDE [Concomitant]
  7. DIPYRIDAMOLE [Concomitant]
  8. ALLOPURINOL [Concomitant]
  9. PANCREAS EXTRACT (PANCREAS EXTRACT) [Concomitant]
  10. DICLOFENAC SODUM (DICLOFENAC SODIUM) [Concomitant]
  11. MECOBALAMIN (MECOBALAMIN) [Concomitant]

REACTIONS (3)
  - CEREBRAL INFARCTION [None]
  - CEREBROVASCULAR ACCIDENT [None]
  - ORTHOSTATIC HYPOTENSION [None]
